FAERS Safety Report 7808858-0 (Version None)
Quarter: 2011Q4

REPORT INFORMATION
  Report Type: 
  Country: None (occurrence: None)
  Receive Date: 20111012
  Receipt Date: 20111006
  Transmission Date: 20120403
  Serious: Yes (Hospitalization)
  Sender: FDA-Public Use
  Company Number: PHHY2011CA86934

PATIENT
  Sex: Female

DRUGS (5)
  1. ZOLEDRONOC ACID [Suspect]
     Indication: OSTEOPOROSIS
     Dosage: UNK UKN, UNK
     Route: 042
     Dates: start: 20100803
  2. SYNTHROID [Concomitant]
     Dosage: 75 MG, QD
  3. HYDROMORPHONE HCL [Concomitant]
     Route: 042
  4. ATACAND [Concomitant]
     Dosage: 4 MG, QD
  5. DABIGATRAN [Suspect]

REACTIONS (2)
  - HAEMORRHAGE [None]
  - HAEMARTHROSIS [None]
